FAERS Safety Report 19581120 (Version 1)
Quarter: 2021Q3

REPORT INFORMATION
  Report Type: Spontaneous
  Country: US (occurrence: US)
  Receive Date: 20210719
  Receipt Date: 20210719
  Transmission Date: 20211014
  Serious: Yes (Other)
  Sender: FDA-Public Use
  Company Number: None

PATIENT
  Age: 70 Year
  Sex: Male
  Weight: 81.9 kg

DRUGS (1)
  1. ICOSAPENT ETHYL CAPSULES 1 GRAM [Suspect]
     Active Substance: ICOSAPENT ETHYL
     Indication: HYPERTRIGLYCERIDAEMIA
     Dosage: ?          QUANTITY:360 CAPSULE(S);?
     Route: 048
     Dates: start: 20200101, end: 20210712

REACTIONS (3)
  - Blood triglycerides increased [None]
  - Product residue present [None]
  - Product solubility abnormal [None]

NARRATIVE: CASE EVENT DATE: 20210712
